FAERS Safety Report 4795043-2 (Version None)
Quarter: 2005Q3

REPORT INFORMATION
  Report Type: 
  Country: None (occurrence: None)
  Receive Date: 20050919
  Receipt Date: 20050601
  Transmission Date: 20060218
  Serious: No
  Sender: FDA-Public Use
  Company Number: US-JNJFOC-20050601246

PATIENT
  Age: 30 Year
  Sex: Female
  Weight: 53.5244 kg

DRUGS (1)
  1. ORTHO TRI-CYCLEN LO [Suspect]
     Indication: CONTRACEPTION
     Dosage: 1 DOSE(S), 1 IN 1 DAY, ORAL
     Route: 048

REACTIONS (2)
  - ACNE [None]
  - METRORRHAGIA [None]
